FAERS Safety Report 4671125-0 (Version None)
Quarter: 2005Q2

REPORT INFORMATION
  Report Type: 
  Country: None (occurrence: None)
  Receive Date: 20050523
  Receipt Date: 20050510
  Transmission Date: 20051028
  Serious: Yes (Death)
  Sender: FDA-Public Use
  Company Number: 214361

PATIENT
  Age: 74 Year
  Sex: Female

DRUGS (3)
  1. RITUXAN [Suspect]
     Indication: NON-HODGKIN'S LYMPHOMA
     Dosage: 470 MG INTRAVENOUS
     Route: 042
     Dates: start: 20031009, end: 20031009
  2. KIROSIDE [Concomitant]
  3. SACSIZONE [Concomitant]

REACTIONS (4)
  - FLATULENCE [None]
  - HEPATIC FAILURE [None]
  - MELAENA [None]
  - TREMOR [None]
